FAERS Safety Report 6954884-3 (Version None)
Quarter: 2010Q3

REPORT INFORMATION
  Report Type: 
  Country: None (occurrence: None)
  Receive Date: 20100830
  Receipt Date: 20100826
  Transmission Date: 20110219
  Serious: Yes (Hospitalization)
  Sender: FDA-Public Use
  Company Number: JP-RB-014476-10

PATIENT
  Age: 43 Year
  Sex: Male

DRUGS (2)
  1. LEPETAN INJECTION [Suspect]
     Indication: PROCEDURAL PAIN
     Dosage: BIW, DOSE UNKNOWN
     Route: 030
  2. LEPETAN INJECTION [Suspect]
     Dosage: UNKNOWN DAILY DOSE
     Route: 030

REACTIONS (1)
  - SOMATIC HALLUCINATION [None]
